FAERS Safety Report 7183698-7 (Version None)
Quarter: 2010Q4

REPORT INFORMATION
  Report Type: 
  Country: None (occurrence: None)
  Receive Date: 20101210
  Receipt Date: 20101203
  Transmission Date: 20110411
  Serious: Yes (Hospitalization)
  Sender: FDA-Public Use
  Company Number: 1000016522

PATIENT
  Age: 2 Year
  Sex: Female
  Weight: 13 kg

DRUGS (1)
  1. LEVOTHROID [Suspect]
     Dosage: 6 MG (6 MG, ONCE), ORAL
     Route: 048
     Dates: start: 20071118, end: 20071118

REACTIONS (3)
  - ACCIDENTAL DRUG INTAKE BY CHILD [None]
  - CYANOSIS [None]
  - THYROTOXIC CRISIS [None]
